FAERS Safety Report 21485253 (Version 1)
Quarter: 2022Q4

REPORT INFORMATION
  Report Type: Spontaneous
  Country: CN (occurrence: CN)
  Receive Date: 20221020
  Receipt Date: 20221020
  Transmission Date: 20230113
  Serious: Yes (Other)
  Sender: FDA-Public Use
  Company Number: None

PATIENT
  Age: 62 Year
  Sex: Female
  Weight: 55 kg

DRUGS (4)
  1. CYCLOPHOSPHAMIDE [Suspect]
     Active Substance: CYCLOPHOSPHAMIDE
     Indication: Breast cancer female
     Dosage: 900.0 MG ONCE DAILY, POWDER INJECTION (DILUTED WITH NS 45ML)
     Route: 042
     Dates: start: 20220705, end: 20220705
  2. SODIUM CHLORIDE [Suspect]
     Active Substance: SODIUM CHLORIDE
     Indication: Medication dilution
     Dosage: 45ML, QD (DILUTED IN CYCLOPHOSPHAMIDE FOR INJECTION (ENDOXAN CTX) 900 MG)
     Route: 042
     Dates: start: 20220705, end: 20220705
  3. SODIUM CHLORIDE [Suspect]
     Active Substance: SODIUM CHLORIDE
     Dosage: 250ML, QD (DILUTED IN DOCETAXEL INJECTION (HUIYU) 115 MG)
     Route: 041
     Dates: start: 20220705, end: 20220705
  4. DOCETAXEL [Suspect]
     Active Substance: DOCETAXEL
     Indication: Breast cancer female
     Dosage: 115.0 MG ONCE DAILY (DILUTED WITH NS 250ML)
     Route: 041
     Dates: start: 20220705, end: 20220705

REACTIONS (2)
  - White blood cell count decreased [Recovered/Resolved]
  - Agranulocytosis [Recovered/Resolved]

NARRATIVE: CASE EVENT DATE: 20220712
